FAERS Safety Report 7291016-9 (Version None)
Quarter: 2011Q1

REPORT INFORMATION
  Report Type: 
  Country: None (occurrence: None)
  Receive Date: 20110214
  Receipt Date: 20110202
  Transmission Date: 20110831
  Serious: Yes (Other)
  Sender: FDA-Public Use
  Company Number: PHHY2011CH08835

PATIENT

DRUGS (3)
  1. CLOPIN ECO [Suspect]
     Indication: SCHIZOPHRENIA, DISORGANISED TYPE
     Dosage: 500 MG, UNK
     Route: 048
     Dates: start: 20050101, end: 20101001
  2. CLOPIN ECO [Suspect]
     Dosage: 200 MG, UNK
     Route: 048
     Dates: start: 20101001
  3. TIMONIL [Concomitant]
     Dosage: UNK
     Dates: end: 20100531

REACTIONS (4)
  - GENERAL PHYSICAL HEALTH DETERIORATION [None]
  - URINARY RETENTION [None]
  - DRUG LEVEL INCREASED [None]
  - NEGATIVE THOUGHTS [None]
